FAERS Safety Report 4920870-8 (Version None)
Quarter: 2006Q1

REPORT INFORMATION
  Report Type: 
  Country: None (occurrence: None)
  Receive Date: 20060113
  Receipt Date: 20050920
  Transmission Date: 20060701
  Serious: No
  Sender: FDA-Public Use
  Company Number: 2005SP003099

PATIENT
  Age: 55 Year
  Sex: Female
  Weight: 63.5036 kg

DRUGS (6)
  1. LUNESTA [Suspect]
     Indication: INSOMNIA
     Dosage: 2 MG;HS;ORAL
     Route: 048
     Dates: start: 20050610, end: 20050601
  2. EFFEXOR [Concomitant]
  3. ADVAIR DISKUS 100/50 [Concomitant]
  4. SINGULAIR [Concomitant]
  5. BENICAR [Concomitant]
  6. MESTINON [Concomitant]

REACTIONS (4)
  - DRUG INEFFECTIVE [None]
  - HOT FLUSH [None]
  - INITIAL INSOMNIA [None]
  - NIGHTMARE [None]
